FAERS Safety Report 24338445 (Version 1)
Quarter: 2024Q3

REPORT INFORMATION
  Report Type: Spontaneous
  Country: US (occurrence: US)
  Receive Date: 20240919
  Receipt Date: 20240919
  Transmission Date: 20241017
  Serious: Yes (Other)
  Sender: NOVARTIS
  Company Number: US-SANDOZ-SDZ2024US080165

PATIENT
  Age: 56 Year
  Sex: Female

DRUGS (24)
  1. CYCLOSPORINE [Suspect]
     Active Substance: CYCLOSPORINE
     Indication: Product used for unknown indication
     Dosage: 150 MG, QD, 75 MG, BID
     Route: 048
     Dates: start: 20240801
  2. ZORTRESS [Suspect]
     Active Substance: EVEROLIMUS
     Indication: Product used for unknown indication
     Dosage: UNK, TAKE 3 TABLETS IN THE AM AND TAKE 2 TABLETS IN THE PM. TOTAL DOSE: AM 1.5MG / PM 1 MG. TAKE 12
     Route: 048
     Dates: start: 20240821
  3. ACYCLOVIR [Suspect]
     Active Substance: ACYCLOVIR
     Indication: Prophylaxis
     Dosage: UNK
     Route: 065
  4. MONTELUKAST [Suspect]
     Active Substance: MONTELUKAST SODIUM
     Indication: Product used for unknown indication
     Dosage: 10 MG, QD, 10 MG, QD (AT BED TIME)
     Route: 048
     Dates: start: 20240206
  5. LEVOTHYROXINE [Suspect]
     Active Substance: LEVOTHYROXINE\LEVOTHYROXINE SODIUM
     Indication: Product used for unknown indication
     Dosage: 50 UG, QD, 50 UG, QD (EMPTY STOMACH)
     Route: 048
  6. DELTASONE [Suspect]
     Active Substance: PREDNISONE
     Indication: Product used for unknown indication
     Dosage: 5 MG, QD, 5 MG, QD, BED TIME
     Route: 048
     Dates: start: 20240327
  7. CELLCEPT [Suspect]
     Active Substance: MYCOPHENOLATE MOFETIL
     Indication: Product used for unknown indication
     Dosage: 500 MG, QD, 250 MG, BID
     Route: 065
     Dates: start: 20240313
  8. LETERMOVIR [Suspect]
     Active Substance: LETERMOVIR
     Indication: Prophylaxis
     Dosage: UNK
     Route: 065
  9. GANCICLOVIR [Suspect]
     Active Substance: GANCICLOVIR
     Indication: Product used for unknown indication
     Dosage: UNK
     Route: 042
  10. VALGANCICLOVIR [Suspect]
     Active Substance: VALGANCICLOVIR
     Indication: Product used for unknown indication
     Dosage: 450 MG, QD, 450 MG, QD
     Route: 048
     Dates: start: 20240425
  11. POSACONAZOLE [Suspect]
     Active Substance: POSACONAZOLE
     Indication: Product used for unknown indication
     Dosage: UNK
     Route: 065
     Dates: start: 2022, end: 202407
  12. VEETIDS [Suspect]
     Active Substance: PENICILLIN V POTASSIUM
     Indication: Product used for unknown indication
     Dosage: 1000 MG, QD,~500 MG, BID
     Route: 065
     Dates: start: 20240212
  13. TOBI [Suspect]
     Active Substance: TOBRAMYCIN
     Indication: Product used for unknown indication
     Dosage: 10 ML, QD, 5 ML, BID (TAKE 5 ML BY NEBULIZATION EVERY 12 HOURS USE IN 1 MONTH ON MEDICATION, 1 MONTH
     Route: 065
     Dates: start: 20240411
  14. ALBUTEROL SULFATE [Suspect]
     Active Substance: ALBUTEROL SULFATE
     Indication: Mycobacterium fortuitum infection
     Dosage: UNK, 2.5 MG /3 ML (0.083 %)
     Route: 065
     Dates: start: 20240716
  15. NORVASC [Suspect]
     Active Substance: AMLODIPINE BESYLATE
     Indication: Mycobacterium fortuitum infection
     Dosage: 10 MG, QD, 5 MG, BID
     Route: 048
     Dates: start: 20240827
  16. MEPRON [Suspect]
     Active Substance: ATOVAQUONE
     Indication: Mycobacterium fortuitum infection
     Dosage: 10 ML, QD, 10 ML TAKE 10 ML BY MOUTH DAILY
     Route: 048
     Dates: start: 20240812
  17. CHOLECALCIFEROL [Suspect]
     Active Substance: CHOLECALCIFEROL
     Indication: Product used for unknown indication
     Dosage: UNK, TAKE 1 TABLET BY MOUTH DAILY
     Route: 048
  18. VITAMIN D3 [Suspect]
     Active Substance: CHOLECALCIFEROL
     Indication: Product used for unknown indication
     Dosage: 125 UG, QD, 125 UG, QD
     Route: 048
     Dates: start: 20231113
  19. LEVAQUIN [Suspect]
     Active Substance: LEVOFLOXACIN
     Indication: Cytopenia
     Dosage: 750 MG, QD, 750 MG, QD
     Route: 048
     Dates: start: 20240509
  20. BACTRIM DS [Suspect]
     Active Substance: SULFAMETHOXAZOLE\TRIMETHOPRIM
     Indication: Mycobacterium fortuitum infection
     Dosage: UNK, ~800-160MG, BID
     Route: 048
     Dates: start: 20240509
  21. DOMPERIDONE [Suspect]
     Active Substance: DOMPERIDONE
     Indication: Product used for unknown indication
     Dosage: 40 MG, QD, 10 MG, QID
     Route: 048
     Dates: start: 20240227
  22. PRAVACHOL [Suspect]
     Active Substance: PRAVASTATIN SODIUM
     Indication: Product used for unknown indication
     Dosage: 10 MG, QD, 10 MG, QD
     Route: 048
     Dates: start: 20231027
  23. PREVACID [Suspect]
     Active Substance: LANSOPRAZOLE
     Indication: Product used for unknown indication
     Dosage: 60 MG, QD, 30 MG, BID
     Route: 048
     Dates: start: 20240819
  24. PEPCID [Suspect]
     Active Substance: FAMOTIDINE
     Indication: Product used for unknown indication
     Dosage: 20 MG, QD,20 MG, QD
     Route: 048
     Dates: start: 20240212

REACTIONS (5)
  - Cytopenia [Not Recovered/Not Resolved]
  - Hot flush [Not Recovered/Not Resolved]
  - Night sweats [Not Recovered/Not Resolved]
  - Urine albumin/creatinine ratio [Unknown]
  - Extra dose administered [Unknown]
